FAERS Safety Report 12201990 (Version 1)
Quarter: 2016Q1

REPORT INFORMATION
  Report Type: Spontaneous
  Country: BE (occurrence: BE)
  Receive Date: 20160322
  Receipt Date: 20160322
  Transmission Date: 20160526
  Serious: Yes (Other)
  Sender: FDA-Public Use
  Company Number: BE-PFIZER INC-2016161186

PATIENT
  Age: 55 Year
  Sex: Male

DRUGS (2)
  1. EFFEXOR XR [Suspect]
     Active Substance: VENLAFAXINE HYDROCHLORIDE
     Indication: ANXIETY
     Dosage: 150 MG, 1X/DAY
     Route: 048
     Dates: start: 2012
  2. EFFEXOR XR [Suspect]
     Active Substance: VENLAFAXINE HYDROCHLORIDE
     Dosage: ALTERNATIVELY 150 - 75
     Route: 048

REACTIONS (7)
  - Erectile dysfunction [Unknown]
  - Nausea [Unknown]
  - Drug dependence [Unknown]
  - Drug prescribing error [Unknown]
  - Drug withdrawal syndrome [Unknown]
  - Head discomfort [Unknown]
  - Drug dose omission [Unknown]
